FAERS Safety Report 14579302 (Version 1)
Quarter: 2018Q1

REPORT INFORMATION
  Report Type: Spontaneous
  Country: US (occurrence: US)
  Receive Date: 20180227
  Receipt Date: 20180227
  Transmission Date: 20180509
  Serious: No
  Sender: FDA-Public Use
  Company Number: US-BIOGEN-2015BI008113

PATIENT
  Age: 52 Year
  Sex: Male

DRUGS (1)
  1. PLEGRIDY [Suspect]
     Active Substance: PEGINTERFERON BETA-1A
     Indication: RELAPSING-REMITTING MULTIPLE SCLEROSIS
     Route: 058
     Dates: start: 20150112

REACTIONS (7)
  - Underdose [Recovered/Resolved]
  - Injury associated with device [Unknown]
  - Device malfunction [Unknown]
  - Drug dose omission [Unknown]
  - Injection site extravasation [Unknown]
  - Exposure via skin contact [Recovered/Resolved]
  - Fear [Unknown]

NARRATIVE: CASE EVENT DATE: 20150112
